FAERS Safety Report 9928883 (Version 1)
Quarter: 2014Q1

REPORT INFORMATION
  Report Type: Spontaneous
  Country: US (occurrence: None)
  Receive Date: 20140221
  Receipt Date: 20140221
  Transmission Date: 20141002
  Serious: Yes (Death, Hospitalization)
  Sender: FDA-Public Use
  Company Number: SYM-2014-17508

PATIENT
  Age: 90 Year
  Sex: Female

DRUGS (1)
  1. XENAZINE (TETRABENAZINE) [Suspect]
     Indication: HUNTINGTON^S DISEASE
     Dosage: 25 MG AT 9AM, 12.5 MG AT 1 PM AND 12.5 MG AT 5 PM, DAILY, ORAL)
     Route: 048
     Dates: start: 20100214, end: 20131027

REACTIONS (1)
  - Death [None]
